FAERS Safety Report 23893732 (Version 1)
Quarter: 2024Q2

REPORT INFORMATION
  Report Type: Spontaneous
  Country: BR (occurrence: BR)
  Receive Date: 20240524
  Receipt Date: 20240524
  Transmission Date: 20240716
  Serious: Yes (Other)
  Sender: FDA-Public Use
  Company Number: BR-UCBSA-2024025308

PATIENT
  Sex: Male

DRUGS (6)
  1. NEUPRO [Suspect]
     Active Substance: ROTIGOTINE
     Indication: Restless legs syndrome
     Dosage: 1 MILLIGRAM
     Route: 062
  2. NEUPRO [Suspect]
     Active Substance: ROTIGOTINE
     Indication: Compulsions
     Dosage: 2 MILLIGRAM
     Route: 062
  3. NEUPRO [Suspect]
     Active Substance: ROTIGOTINE
     Indication: Off label use
     Dosage: 3 MILLIGRAM
     Route: 062
  4. COCAINE [Suspect]
     Active Substance: COCAINE
     Indication: Product used for unknown indication
     Dosage: UNK
  5. GABAPENTIN [Concomitant]
     Active Substance: GABAPENTIN
     Indication: Restless legs syndrome
     Dosage: AT NIGHT
  6. TRAMADOL [Concomitant]
     Active Substance: TRAMADOL\TRAMADOL HYDROCHLORIDE
     Indication: Restless legs syndrome
     Dosage: AT NIGHT

REACTIONS (7)
  - Drug dependence [Unknown]
  - Compulsive shopping [Unknown]
  - Compulsive sexual behaviour [Unknown]
  - Insomnia [Unknown]
  - Abnormal behaviour [Unknown]
  - Drug ineffective [Unknown]
  - Off label use [Unknown]
